FAERS Safety Report 4722492-0 (Version None)
Quarter: 2005Q3

REPORT INFORMATION
  Report Type: 
  Country: None (occurrence: None)
  Receive Date: 20050722
  Receipt Date: 20050512
  Transmission Date: 20060218
  Serious: Yes (Other)
  Sender: FDA-Public Use
  Company Number: US-GLAXOSMITHKLINE-A0558858A

PATIENT
  Age: 68 Year
  Sex: Male
  Weight: 100.9 kg

DRUGS (2)
  1. AVANDIA [Suspect]
     Route: 048
  2. MAXZIDE [Concomitant]
     Route: 065

REACTIONS (2)
  - FLUID RETENTION [None]
  - WEIGHT INCREASED [None]
